FAERS Safety Report 7287720-9 (Version None)
Quarter: 2011Q1

REPORT INFORMATION
  Report Type: 
  Country: None (occurrence: None)
  Receive Date: 20110211
  Receipt Date: 20110201
  Transmission Date: 20110831
  Serious: Yes (Other)
  Sender: FDA-Public Use
  Company Number: CO-SANOFI-AVENTIS-2011SA004579

PATIENT
  Age: 81 Year
  Sex: Female

DRUGS (8)
  1. LOSARTAN POTASSIUM [Concomitant]
  2. PLASIL [Concomitant]
     Dates: end: 20110125
  3. INSULIN ZINC SUSPENSION (CRYSTALLINE) [Concomitant]
  4. METOPROLOL [Concomitant]
     Indication: HYPERTENSION
     Route: 048
  5. CIPROFLOXACIN [Concomitant]
  6. MULTAQ [Suspect]
     Indication: ATRIAL FIBRILLATION
     Route: 048
     Dates: start: 20110106, end: 20110125
  7. NPH INSULIN [Concomitant]
  8. AMLODIPINE [Concomitant]
     Indication: HYPERTENSION
     Route: 048

REACTIONS (6)
  - UNDERDOSE [None]
  - BLOOD GLUCOSE FLUCTUATION [None]
  - CONDITION AGGRAVATED [None]
  - NAUSEA [None]
  - DIARRHOEA [None]
  - VOMITING [None]
